FAERS Safety Report 8215622-X (Version None)
Quarter: 2012Q1

REPORT INFORMATION
  Report Type: 
  Country: None (occurrence: None)
  Receive Date: 20120316
  Receipt Date: 20120312
  Transmission Date: 20120608
  Serious: Yes (Death, Hospitalization, Other)
  Sender: FDA-Public Use
  Company Number: JP-ELI_LILLY_AND_COMPANY-JP201201007143

PATIENT
  Sex: Female
  Weight: 50 kg

DRUGS (15)
  1. GEMZAR [Suspect]
     Indication: PANCREATIC CARCINOMA STAGE IV
     Dosage: 1400 MG, OTHER
     Route: 042
     Dates: start: 20111104, end: 20120113
  2. ETICALM [Concomitant]
     Indication: INSOMNIA
     Dosage: 0.5 MG, QD
     Route: 048
     Dates: start: 20111029, end: 20120127
  3. AMLODIPINE [Concomitant]
     Indication: HYPERTENSION
     Dosage: 5 MG, QD
     Route: 048
     Dates: start: 20111029, end: 20120127
  4. SODIUM ALGINATE [Concomitant]
  5. MOTILIUM [Concomitant]
  6. MAGNESIUM SULFATE [Concomitant]
     Indication: CONSTIPATION
     Dosage: 660 MG, TID
     Route: 048
     Dates: start: 20111029, end: 20120127
  7. ORGADRONE [Concomitant]
     Indication: PROPHYLAXIS
     Dosage: 7.8 MG, UNK
     Route: 042
     Dates: start: 20111104, end: 20120113
  8. RABEPRAZOLE SODIUM [Concomitant]
  9. SULCAIN [Concomitant]
  10. RINDERON                           /00008501/ [Concomitant]
     Indication: DECREASED APPETITE
     Dosage: 0.5 MG, BID
     Route: 048
     Dates: start: 20111029, end: 20120127
  11. MIRADOL [Concomitant]
     Indication: DECREASED APPETITE
     Dosage: 50 MG, TID
     Route: 048
     Dates: start: 20111029, end: 20120127
  12. LIPITOR [Concomitant]
  13. OXYCONTIN [Concomitant]
     Indication: CANCER PAIN
     Dosage: 5 MG, BID
     Route: 048
     Dates: start: 20111029, end: 20120127
  14. SENNOSIDE A+B CALCIUM [Concomitant]
     Indication: CONSTIPATION
     Dosage: 24 MG, QD
     Route: 048
     Dates: start: 20111029, end: 20120127
  15. MORPHINE [Concomitant]
     Dosage: 1 DF, UNK
     Route: 048
     Dates: start: 20111102

REACTIONS (5)
  - BLOOD GLUCOSE INCREASED [None]
  - PNEUMONIA [None]
  - DECREASED APPETITE [None]
  - RESPIRATORY FAILURE [None]
  - NO THERAPEUTIC RESPONSE [None]
